FAERS Safety Report 24235527 (Version 2)
Quarter: 2024Q3

REPORT INFORMATION
  Report Type: Report from Study
  Country: US (occurrence: US)
  Receive Date: 20240821
  Receipt Date: 20240919
  Transmission Date: 20241017
  Serious: Yes (Hospitalization, Other)
  Sender: ABBVIE
  Company Number: US-ABBVIE-5887361

PATIENT
  Sex: Male

DRUGS (2)
  1. RINVOQ [Suspect]
     Active Substance: UPADACITINIB
     Indication: Crohn^s disease
     Route: 048
     Dates: start: 20240618
  2. IRON [Suspect]
     Active Substance: IRON
     Indication: Blood iron decreased
     Route: 065

REACTIONS (6)
  - Haemoglobin decreased [Recovering/Resolving]
  - Fatigue [Unknown]
  - Blood iron decreased [Unknown]
  - Haematochezia [Recovering/Resolving]
  - Abdominal pain upper [Not Recovered/Not Resolved]
  - Faeces hard [Unknown]

NARRATIVE: CASE EVENT DATE: 20240101
